FAERS Safety Report 18921700 (Version 1)
Quarter: 2021Q1

REPORT INFORMATION
  Report Type: Spontaneous
  Country: US (occurrence: US)
  Receive Date: 20210219
  Receipt Date: 20210219
  Transmission Date: 20210420
  Serious: Yes (Other)
  Sender: FDA-Public Use
  Company Number: None

PATIENT
  Age: 73 Year
  Sex: Female
  Weight: 117 kg

DRUGS (11)
  1. BREZTRI AEROSPHERE [Suspect]
     Active Substance: BUDESONIDE\FORMOTEROL\GLYCOPYRRONIUM
     Indication: DYSPNOEA
     Dosage: ?          OTHER STRENGTH:160MCG/9MCG;QUANTITY:1 INHALATION(S);?
     Route: 055
  2. OZEMPIC [Concomitant]
     Active Substance: SEMAGLUTIDE
  3. SODIUM BICARBONATE. [Concomitant]
     Active Substance: SODIUM BICARBONATE
  4. LEXAPRO [Concomitant]
     Active Substance: ESCITALOPRAM OXALATE
  5. ALTACE [Concomitant]
     Active Substance: RAMIPRIL
  6. AMLODIPINE [Concomitant]
     Active Substance: AMLODIPINE BESYLATE
  7. GLUCOSAMINE W/CHONDROITIN [Concomitant]
     Active Substance: CHONDROITIN SULFATE A\GLUCOSAMINE
  8. LIPITOR [Concomitant]
     Active Substance: ATORVASTATIN CALCIUM
  9. CINNAMON. [Concomitant]
     Active Substance: CINNAMON
  10. ZINC. [Concomitant]
     Active Substance: ZINC
  11. ASPIRIN  81 MG [Concomitant]
     Active Substance: ASPIRIN

REACTIONS (1)
  - Epistaxis [None]

NARRATIVE: CASE EVENT DATE: 20210125
